FAERS Safety Report 21926745 (Version 2)
Quarter: 2024Q1

REPORT INFORMATION
  Report Type: Spontaneous
  Country: US (occurrence: US)
  Receive Date: 20230130
  Receipt Date: 20240109
  Transmission Date: 20240410
  Serious: No
  Sender: FDA-Public Use
  Company Number: US-GALDERMA-US2022017120

PATIENT

DRUGS (4)
  1. DESONIDE [Suspect]
     Active Substance: DESONIDE
     Indication: Fungal infection
     Dosage: 1 DOSAGE FORM DAILY, 15 G, BID FOR 2 WEEKS, FACE
     Route: 061
     Dates: start: 20220224, end: 202203
  2. DESONIDE [Suspect]
     Active Substance: DESONIDE
     Indication: Seborrhoeic dermatitis
     Dosage: 1 DOSAGE FORM DAILY, 15 G, 1 WEEK OFF, THEN STARTED TOTAL DOSE FOR PERIOD OF 8 WEEKS
     Route: 061
     Dates: start: 202203, end: 20220421
  3. CICLOPIROX [Concomitant]
     Active Substance: CICLOPIROX\TOCOPHEROL
     Indication: Fungal infection
     Dosage: 1 DOSAGE FORM, BID, 1 DOSAGE FORM DAILY, 15 G, BID FOR 2 WEEKS, FACE
     Route: 061
     Dates: start: 20220224, end: 202203
  4. CICLOPIROX [Concomitant]
     Active Substance: CICLOPIROX\TOCOPHEROL
     Indication: Seborrhoeic dermatitis
     Dosage: UNK, BID, 1 DOSAGE FORM DAILY, 15 G, 1 WEEK OFF, THEN STARTED TOTAL DOSE FOR PERIOD OF 8 WEEKS
     Route: 061
     Dates: start: 202203, end: 20220421

REACTIONS (4)
  - Alopecia totalis [Unknown]
  - Dermatitis contact [Unknown]
  - Drug ineffective for unapproved indication [Recovered/Resolved]
  - Intentional product use issue [Recovered/Resolved]

NARRATIVE: CASE EVENT DATE: 20220101
